FAERS Safety Report 7741677-2 (Version None)
Quarter: 2011Q3

REPORT INFORMATION
  Report Type: 
  Country: None (occurrence: None)
  Receive Date: 20110912
  Receipt Date: 20110906
  Transmission Date: 20111222
  Serious: Yes (Other)
  Sender: FDA-Public Use
  Company Number: US-SHIRE-ALL1-2011-01345

PATIENT
  Sex: Male
  Weight: 86.168 kg

DRUGS (2)
  1. VPRIV [Suspect]
     Dosage: 4300 IU, 1X/2WKS
     Route: 041
     Dates: start: 20110101
  2. VPRIV [Suspect]
     Indication: GAUCHER'S DISEASE
     Dosage: 4000 MG, 1X/2WKS
     Route: 041
     Dates: start: 20100623

REACTIONS (6)
  - COGNITIVE DISORDER [None]
  - PAIN [None]
  - CONDITION AGGRAVATED [None]
  - WEIGHT DECREASED [None]
  - APHASIA [None]
  - BONE PAIN [None]
